FAERS Safety Report 10448384 (Version 1)
Quarter: 2014Q3

REPORT INFORMATION
  Report Type: Spontaneous
  Country: DK (occurrence: DE)
  Receive Date: 20140911
  Receipt Date: 20140911
  Transmission Date: 20150326
  Serious: Yes (Hospitalization, Other)
  Sender: FDA-Public Use
  Company Number: DE-FRI-1000070535

PATIENT
  Age: 30 Year
  Sex: Female
  Weight: 58 kg

DRUGS (3)
  1. ESCITALOPRAM [Suspect]
     Active Substance: ESCITALOPRAM OXALATE
     Dosage: GRADUALLY REDUCED TO 1 MG/DAY
     Route: 048
     Dates: end: 20130806
  2. GYNVITAL [Concomitant]
     Indication: PROPHYLAXIS OF NEURAL TUBE DEFECT
     Dosage: 0.4 MG
     Route: 048
     Dates: end: 201305
  3. ESCITALOPRAM [Suspect]
     Active Substance: ESCITALOPRAM OXALATE
     Indication: DEPRESSION
     Dosage: 15 MG
     Route: 048
     Dates: start: 20121028

REACTIONS (5)
  - Obstructed labour [Unknown]
  - Vomiting in pregnancy [Unknown]
  - Caesarean section [Unknown]
  - Pyelonephritis [Unknown]
  - Clostridial infection [Unknown]

NARRATIVE: CASE EVENT DATE: 20130806
